FAERS Safety Report 20172606 (Version 1)
Quarter: 2021Q4

REPORT INFORMATION
  Report Type: Spontaneous
  Country: FR (occurrence: FR)
  Receive Date: 20211211
  Receipt Date: 20211211
  Transmission Date: 20220303
  Serious: Yes (Life-Threatening)
  Sender: FDA-Public Use
  Company Number: None

PATIENT
  Age: 66 Year
  Sex: Male
  Weight: 82 kg

DRUGS (6)
  1. KETOPROFEN [Suspect]
     Active Substance: KETOPROFEN
     Indication: Sciatica
     Dosage: UNKNOWN,
     Route: 048
     Dates: start: 20211004, end: 20211009
  2. PREDNISONE [Suspect]
     Active Substance: PREDNISONE
     Indication: Lung disorder
     Dosage: 40 MG
     Route: 048
     Dates: start: 20211015, end: 20211018
  3. ALDACTONE [Concomitant]
     Active Substance: SPIRONOLACTONE
     Dosage: THERAPY START DATE :ASKU, THERAPY END DATE: ASKU,100 MG
     Route: 048
  4. FELODIPINE\METOPROLOL SUCCINATE [Concomitant]
     Active Substance: FELODIPINE\METOPROLOL SUCCINATE
     Dosage: 5 MG / 47.5 MG PROLONGED-RELEASE FILM-COATED TABLET, 1 DF,THERAPY START DATE :ASKU, THERAPY END DATE
     Route: 048
  5. HYDROCHLOROTHIAZIDE\LOSARTAN POTASSIUM [Concomitant]
     Active Substance: HYDROCHLOROTHIAZIDE\LOSARTAN POTASSIUM
     Dosage: 1 DF,THERAPY START DATE :ASKU, THERAPY END DATE: ASKU,100 MG/25 MG
     Route: 048
  6. METFORMIN HYDROCHLORIDE [Concomitant]
     Active Substance: METFORMIN HYDROCHLORIDE
     Dosage: 1 G
     Route: 048

REACTIONS (1)
  - Superinfection bacterial [Recovering/Resolving]

NARRATIVE: CASE EVENT DATE: 20211018
